FAERS Safety Report 25466360 (Version 2)
Quarter: 2025Q3

REPORT INFORMATION
  Report Type: Spontaneous
  Country: US (occurrence: US)
  Receive Date: 20250623
  Receipt Date: 20250730
  Transmission Date: 20251021
  Serious: Yes (Other)
  Sender: NOVO NORDISK
  Company Number: US-NOVOPROD-1461767

PATIENT
  Age: 77 Year
  Sex: Female

DRUGS (7)
  1. TRESIBA [Suspect]
     Active Substance: INSULIN DEGLUDEC
     Indication: Type 2 diabetes mellitus
     Dosage: 14 U, QD
     Route: 058
     Dates: start: 202501, end: 2025
  2. TRESIBA [Suspect]
     Active Substance: INSULIN DEGLUDEC
     Indication: Hyperglycaemia
     Route: 058
     Dates: start: 2025
  3. TRESIBA [Suspect]
     Active Substance: INSULIN DEGLUDEC
     Dosage: 10 IU, QD
     Route: 058
     Dates: start: 20250414
  4. BREZTRI AEROSPHERE [BUDESONIDE;FORMOTEROL FUMARATE DIHYDRATE;GLYCOPYRR [Concomitant]
     Indication: Product used for unknown indication
     Dates: start: 2021
  5. AMLODIPINE [Concomitant]
     Active Substance: AMLODIPINE BESYLATE
     Indication: Product used for unknown indication
  6. REPAGLINIDE [Concomitant]
     Active Substance: REPAGLINIDE
     Indication: Product used for unknown indication
     Dosage: 0.5 MG, BID
     Dates: end: 20250404
  7. TRAZODONE [Concomitant]
     Active Substance: TRAZODONE HYDROCHLORIDE
     Indication: Product used for unknown indication
     Dates: end: 20210421

REACTIONS (2)
  - Adenocarcinoma pancreas [Not Recovered/Not Resolved]
  - Night sweats [Unknown]

NARRATIVE: CASE EVENT DATE: 20250404
